FAERS Safety Report 5919481-7 (Version None)
Quarter: 2008Q4

REPORT INFORMATION
  Report Type: 
  Country: None (occurrence: None)
  Receive Date: 20081014
  Receipt Date: 20081014
  Transmission Date: 20090506
  Serious: Yes (Hospitalization)
  Sender: FDA-Public Use
  Company Number: None

PATIENT
  Sex: Female
  Weight: 65 kg

DRUGS (1)
  1. VICODIN [Suspect]
     Indication: PAIN
     Dosage: 5/500 MG Q4H PRN PO
     Route: 048

REACTIONS (1)
  - RASH [None]
